FAERS Safety Report 12741016 (Version 1)
Quarter: 2016Q3

REPORT INFORMATION
  Report Type: Spontaneous
  Country: DE (occurrence: DE)
  Receive Date: 20160914
  Receipt Date: 20160914
  Transmission Date: 20161109
  Serious: Yes (Other)
  Sender: FDA-Public Use
  Company Number: DE-SUN PHARMACEUTICAL INDUSTRIES LTD-2016RR-123658

PATIENT
  Age: 50 Year
  Sex: Female
  Weight: 65 kg

DRUGS (1)
  1. CEFUROX [Suspect]
     Active Substance: CEFUROXIME AXETIL
     Indication: BRONCHITIS
     Dosage: 250 MG, BID
     Route: 048
     Dates: start: 20160824

REACTIONS (4)
  - Mouth swelling [Unknown]
  - Anosmia [Unknown]
  - Hypoaesthesia oral [Unknown]
  - Ageusia [Unknown]

NARRATIVE: CASE EVENT DATE: 20160824
